FAERS Safety Report 4619150-X (Version None)
Quarter: 2005Q1

REPORT INFORMATION
  Report Type: 
  Country: None (occurrence: None)
  Receive Date: 20050325
  Receipt Date: 20050225
  Transmission Date: 20050727
  Serious: Yes (Hospitalization)
  Sender: FDA-Public Use
  Company Number: FR-GLAXOSMITHKLINE-B0372993A

PATIENT
  Age: 53 Year
  Sex: Male
  Weight: 59 kg

DRUGS (7)
  1. EPIVIR [Suspect]
     Indication: HIV INFECTION
     Dosage: 300MG PER DAY
     Route: 048
     Dates: start: 19960425
  2. DEROXAT [Suspect]
     Indication: ILL-DEFINED DISORDER
     Dosage: 1UNIT PER DAY
     Route: 048
     Dates: start: 20041229
  3. LEXOMIL [Suspect]
     Route: 048
     Dates: start: 20041229
  4. VIDEX [Suspect]
     Dosage: 400MG PER DAY
  5. VIRAMUNE [Suspect]
     Dosage: 400MG PER DAY
     Route: 048
     Dates: start: 20030410
  6. BACTRIM [Suspect]
     Dosage: 1TAB PER DAY
     Route: 048
  7. DERMOVAL [Concomitant]
     Indication: ECZEMA
     Route: 050

REACTIONS (8)
  - ALANINE AMINOTRANSFERASE INCREASED [None]
  - ASPARTATE AMINOTRANSFERASE INCREASED [None]
  - EOSINOPHILIA [None]
  - GAMMA-GLUTAMYLTRANSFERASE INCREASED [None]
  - POLYCYTHAEMIA [None]
  - PULMONARY GRANULOMA [None]
  - PULMONARY TUBERCULOSIS [None]
  - TRANSAMINASES INCREASED [None]
